FAERS Safety Report 4545468-5 (Version None)
Quarter: 2005Q1

REPORT INFORMATION
  Report Type: 
  Country: None (occurrence: None)
  Receive Date: 20050103
  Receipt Date: 20041213
  Transmission Date: 20050727
  Serious: Yes (Hospitalization, Other)
  Sender: FDA-Public Use
  Company Number: USA040465772

PATIENT
  Age: 85 Year
  Sex: Female
  Weight: 54 kg

DRUGS (6)
  1. EVISTA [Suspect]
     Indication: OSTEOPOROSIS
     Dosage: 60 MG/1 DAY
     Dates: start: 20031016, end: 20031120
  2. FORTEO [Suspect]
     Indication: OSTEOPOROSIS
     Dosage: 20 UG/1 DAY
     Dates: start: 20040101
  3. AXID [Concomitant]
  4. HYZAAR [Concomitant]
  5. SPORANOX [Concomitant]
  6. MULTIVITAMIN [Concomitant]

REACTIONS (7)
  - HAEMOPTYSIS [None]
  - HIATUS HERNIA [None]
  - INJECTION SITE HAEMORRHAGE [None]
  - JOINT SWELLING [None]
  - JOINT WARMTH [None]
  - OESOPHAGEAL CARCINOMA [None]
  - TREATMENT NONCOMPLIANCE [None]
